FAERS Safety Report 11157777 (Version 1)
Quarter: 2015Q2

REPORT INFORMATION
  Report Type: Spontaneous
  Country: US (occurrence: None)
  Receive Date: 20150602
  Receipt Date: 20150602
  Transmission Date: 20150821
  Serious: No
  Sender: FDA-Public Use
  Company Number: None

PATIENT
  Age: 70 Year
  Sex: Female
  Weight: 107.5 kg

DRUGS (1)
  1. ENOXAPARIN 120MG WINTHROP [Suspect]
     Active Substance: ENOXAPARIN
     Indication: DEEP VEIN THROMBOSIS
     Route: 058
     Dates: start: 20150420, end: 20150520

REACTIONS (1)
  - Underdose [None]

NARRATIVE: CASE EVENT DATE: 20150528
